FAERS Safety Report 24436242 (Version 1)
Quarter: 2024Q4

REPORT INFORMATION
  Report Type: Report from Study
  Country: KR (occurrence: KR)
  Receive Date: 20241015
  Receipt Date: 20241015
  Transmission Date: 20250115
  Serious: Yes (Death, Other)
  Sender: TAKEDA
  Company Number: KR-TAKEDA-2023TUS097998

PATIENT
  Age: 82 Year
  Sex: Female

DRUGS (1)
  1. BRIGATINIB [Suspect]
     Active Substance: BRIGATINIB
     Indication: Non-small cell lung cancer
     Dosage: 180 MILLIGRAM, QD
     Route: 048
     Dates: start: 20230721, end: 20241012

REACTIONS (3)
  - Death [Fatal]
  - COVID-19 [Unknown]
  - Asthenia [Unknown]

NARRATIVE: CASE EVENT DATE: 20231008
